FAERS Safety Report 5390340-4 (Version None)
Quarter: 2007Q3

REPORT INFORMATION
  Report Type: 
  Country: None (occurrence: None)
  Receive Date: 20070718
  Receipt Date: 20070706
  Transmission Date: 20080115
  Serious: Yes (Other)
  Sender: FDA-Public Use
  Company Number: AU-PFIZER INC-2007041102

PATIENT
  Sex: Male
  Weight: 91.6 kg

DRUGS (3)
  1. SUTENT [Suspect]
     Route: 048
     Dates: start: 20070416, end: 20070426
  2. PERINDOPRIL ERBUMINE [Concomitant]
     Indication: HYPERTENSION
  3. WARFARIN SODIUM [Concomitant]
     Indication: DEEP VEIN THROMBOSIS

REACTIONS (4)
  - ANOREXIA [None]
  - DEAFNESS [None]
  - NAUSEA [None]
  - VOMITING [None]
